FAERS Safety Report 18438161 (Version 2)
Quarter: 2021Q4

REPORT INFORMATION
  Report Type: Spontaneous
  Country: PL (occurrence: PL)
  Receive Date: 20201029
  Receipt Date: 20211004
  Transmission Date: 20220303
  Serious: Yes (Other)
  Sender: FDA-Public Use
  Company Number: PL-SUN PHARMACEUTICAL INDUSTRIES LTD-2020RR-265446

PATIENT
  Age: 75 Year
  Sex: Male

DRUGS (2)
  1. GEMCITABINE [Suspect]
     Active Substance: GEMCITABINE
     Indication: Lung cancer metastatic
     Dosage: 1250 MG/M^2, DAY 1, 8 - CYCLES EVERY 21 DAYS
     Route: 065
     Dates: start: 200901, end: 200903
  2. CISPLATIN [Suspect]
     Active Substance: CISPLATIN
     Indication: Lung cancer metastatic
     Dosage: 75 MG/M^2, DAY 1, 8 - CYCLES EVERY 21 DAYS
     Route: 065
     Dates: start: 200901, end: 200903

REACTIONS (3)
  - Thrombocytopenia [Unknown]
  - Granulocytopenia [Unknown]
  - Anaemia [Unknown]
